FAERS Safety Report 7464025-4 (Version None)
Quarter: 2011Q2

REPORT INFORMATION
  Report Type: 
  Country: None (occurrence: None)
  Receive Date: 20110506
  Receipt Date: 20110427
  Transmission Date: 20111010
  Serious: Yes (Hospitalization, Other)
  Sender: FDA-Public Use
  Company Number: DE-ASTRAZENECA-2011SE19562

PATIENT
  Age: 21063 Day
  Sex: Female
  Weight: 103 kg

DRUGS (13)
  1. BONDIOL [Concomitant]
  2. TORASAMID [Concomitant]
     Dosage: 1/4-0-0
  3. DOXAZOSIN MESYLATE [Concomitant]
  4. BRILINTA (TICAGRELOR) [Suspect]
     Indication: CORONARY ANGIOPLASTY
     Route: 048
     Dates: start: 20110208, end: 20110208
  5. LISINOPRIL [Concomitant]
  6. FLUVASTATIN [Concomitant]
  7. ALLOPURINOL [Concomitant]
  8. METOHEXAL [Concomitant]
  9. ASPIRIN [Concomitant]
  10. MST 60 RETARD [Concomitant]
     Dosage: 1-0-1
  11. PHOS-EX [Concomitant]
  12. PANTOPRAZOLE SODIUM [Concomitant]
  13. PRASUGREL [Concomitant]
     Indication: DRUG HYPERSENSITIVITY

REACTIONS (1)
  - BRADYCARDIA [None]
